FAERS Safety Report 7277998-X (Version None)
Quarter: 2011Q1

REPORT INFORMATION
  Report Type: 
  Country: None (occurrence: None)
  Receive Date: 20110207
  Receipt Date: 20110124
  Transmission Date: 20110831
  Serious: Yes (Other)
  Sender: FDA-Public Use
  Company Number: PHHY2011GB05162

PATIENT
  Age: 77 Year
  Sex: Female

DRUGS (4)
  1. ADCAL-D3 [Concomitant]
     Indication: OSTEOPOROSIS
     Dosage: 1 DF, BID
     Route: 048
     Dates: start: 20060101
  2. LEVOTHYROXINE [Concomitant]
     Indication: HYPOTHYROIDISM
     Dosage: 100 UG, UNK
     Route: 048
  3. ALENDRONIC ACID [Concomitant]
     Indication: OSTEOPOROSIS
     Dosage: 70 MG, UNK
     Route: 048
     Dates: start: 20060101
  4. ITRACONAZOLE [Suspect]
     Dosage: 100 MG, UNK
     Route: 048
     Dates: start: 20101122, end: 20101204

REACTIONS (2)
  - PURPURA [None]
  - VASCULITIS [None]
